FAERS Safety Report 26194001 (Version 1)
Quarter: 2025Q4

REPORT INFORMATION
  Report Type: Spontaneous
  Country: US (occurrence: US)
  Receive Date: 20251224
  Receipt Date: 20251224
  Transmission Date: 20260117
  Serious: Yes (Other)
  Sender: TEVA
  Company Number: US-TEVA-VS-3404308

PATIENT
  Age: 44 Year

DRUGS (1)
  1. DIAMOX SEQUELS [Suspect]
     Active Substance: ACETAZOLAMIDE
     Indication: Product used for unknown indication
     Route: 065

REACTIONS (4)
  - Intracranial pressure increased [Unknown]
  - Headache [Unknown]
  - Visual impairment [Unknown]
  - Eye swelling [Unknown]
